APPROVED DRUG PRODUCT: NEOSTIGMINE METHYLSULFATE
Active Ingredient: NEOSTIGMINE METHYLSULFATE
Strength: 5MG/10ML (0.5MG/ML)
Dosage Form/Route: SOLUTION;INTRAVENOUS
Application: A212968 | Product #001 | TE Code: AP
Applicant: GLAND PHARMA LTD
Approved: Oct 16, 2019 | RLD: No | RS: No | Type: RX